FAERS Safety Report 8915376 (Version 2)
Quarter: 2012Q4

REPORT INFORMATION
  Report Type: 
  Country: US (occurrence: ZA)
  Receive Date: 20121119
  Receipt Date: 20121203
  Transmission Date: 20130627
  Serious: Yes (Other)
  Sender: FDA-Public Use
  Company Number: ZA-COVIDIEN/TYCO HEALTHCARE/MALLINCKRODT-T201204101

PATIENT
  Sex: Male

DRUGS (2)
  1. EXALGO EXTENDED RELEASE [Suspect]
     Indication: PROCEDURAL PAIN
     Dosage: 4 mg, 1 in 1 day
     Route: 048
  2. VENLOR [Concomitant]
     Indication: DEPRESSION
     Dosage: UNK

REACTIONS (3)
  - Depression [Unknown]
  - Visual impairment [Unknown]
  - Constipation [Unknown]
